FAERS Safety Report 4436766-4 (Version None)
Quarter: 2004Q3

REPORT INFORMATION
  Report Type: 
  Country: None (occurrence: None)
  Receive Date: 20040726
  Receipt Date: 20040304
  Transmission Date: 20050211
  Serious: No
  Sender: FDA-Public Use
  Company Number: USA040360982

PATIENT
  Age: 76 Year
  Sex: Male

DRUGS (2)
  1. FORTEO [Suspect]
     Indication: OSTEOPOROSIS
     Dates: start: 20040130
  2. PREVACID [Concomitant]

REACTIONS (1)
  - INJECTION SITE HAEMORRHAGE [None]
